FAERS Safety Report 10209335 (Version 2)
Quarter: 2014Q2

REPORT INFORMATION
  Report Type: Spontaneous
  Country: FR (occurrence: FR)
  Receive Date: 20140531
  Receipt Date: 20140613
  Transmission Date: 20141212
  Serious: Yes (Other)
  Sender: FDA-Public Use
  Company Number: FR-ROCHE-1409104

PATIENT
  Age: 70 Year
  Sex: Male

DRUGS (3)
  1. LUCENTIS [Suspect]
     Indication: GLAUCOMA
     Route: 050
     Dates: start: 20081106
  2. LUCENTIS [Suspect]
     Indication: OFF LABEL USE
  3. OMEPRAZOLE [Concomitant]
     Indication: CHOROID MELANOMA
     Route: 065
     Dates: start: 20071221

REACTIONS (2)
  - Metastases to liver [Unknown]
  - Metastases to bone [Unknown]
